FAERS Safety Report 18429137 (Version 1)
Quarter: 2020Q4

REPORT INFORMATION
  Report Type: Report from Study
  Country: US (occurrence: US)
  Receive Date: 20201026
  Receipt Date: 20201026
  Transmission Date: 20210114
  Serious: Yes (Other)
  Sender: FDA-Public Use
  Company Number: US-BEH-2020123317

PATIENT
  Sex: Male

DRUGS (2)
  1. HIZENTRA [Suspect]
     Active Substance: HUMAN IMMUNOGLOBULIN G
     Indication: CHRONIC INFLAMMATORY DEMYELINATING POLYRADICULONEUROPATHY
     Dosage: UNK
     Route: 058
  2. HIZENTRA [Suspect]
     Active Substance: HUMAN IMMUNOGLOBULIN G
     Dosage: UNK
     Route: 042

REACTIONS (9)
  - Incorrect route of product administration [Unknown]
  - Peripheral swelling [Unknown]
  - Pain in extremity [Unknown]
  - Injection site swelling [Unknown]
  - Chronic inflammatory demyelinating polyradiculoneuropathy [Unknown]
  - Injection site erythema [Unknown]
  - Injection site extravasation [Unknown]
  - Headache [Recovered/Resolved]
  - No adverse event [Unknown]
